FAERS Safety Report 20083897 (Version 1)
Quarter: 2021Q4

REPORT INFORMATION
  Report Type: Spontaneous
  Country: US (occurrence: US)
  Receive Date: 20211118
  Receipt Date: 20211118
  Transmission Date: 20220303
  Serious: Yes (Other)
  Sender: FDA-Public Use
  Company Number: US-SA-SAC20211116000596

PATIENT
  Age: 67 Year
  Sex: Female

DRUGS (1)
  1. ZANTAC [Suspect]
     Active Substance: RANITIDINE HYDROCHLORIDE
     Indication: Gastrointestinal ulcer
     Dosage: UNK, QD
     Dates: start: 199501, end: 201712

REACTIONS (1)
  - Gastrointestinal carcinoma [Unknown]

NARRATIVE: CASE EVENT DATE: 20160301
